FAERS Safety Report 19774200 (Version 5)
Quarter: 2022Q2

REPORT INFORMATION
  Report Type: Report from Study
  Country: FR (occurrence: FR)
  Receive Date: 20210901
  Receipt Date: 20220616
  Transmission Date: 20220721
  Serious: Yes (Hospitalization, Other)
  Sender: FDA-Public Use
  Company Number: FR-PFIZER INC-2021289851

PATIENT
  Age: 67 Year
  Sex: Female
  Weight: 70 kg

DRUGS (16)
  1. METHOTREXATE [Suspect]
     Active Substance: METHOTREXATE
     Indication: Rheumatoid arthritis
     Dosage: UNK
     Route: 048
     Dates: start: 2008, end: 20190304
  2. METHOTREXATE [Suspect]
     Active Substance: METHOTREXATE
     Dosage: 5 MILLIGRAM, QD
     Route: 048
     Dates: start: 20190223, end: 20190304
  3. METHOTREXATE [Suspect]
     Active Substance: METHOTREXATE
     Dosage: 10 MILLIGRAM, QW (2 DF, DAILY (1 DAYS/7 FOR 30 DAYS, 2 TABLETS IN THE EVENING))
     Route: 048
     Dates: start: 2011
  4. METHOTREXATE [Suspect]
     Active Substance: METHOTREXATE
     Dosage: 10 MILLIGRAM, QW (2 DF, DAILY (1 DAYS/7 FOR 30 DAYS, 2 TABLETS IN THE EVENING) )
     Route: 048
     Dates: start: 2008
  5. PANTOPRAZOLE [Suspect]
     Active Substance: PANTOPRAZOLE
     Indication: Product used for unknown indication
     Dosage: UNK
  6. PANTOPRAZOLE [Suspect]
     Active Substance: PANTOPRAZOLE
     Dosage: UNK
     Dates: start: 20190306, end: 20190308
  7. ENBREL [Suspect]
     Active Substance: ETANERCEPT
     Indication: Rheumatoid arthritis
     Dosage: UNK
     Route: 058
     Dates: start: 2011, end: 20190204
  8. ENBREL [Suspect]
     Active Substance: ETANERCEPT
     Dosage: 50 MILLIGRAM, QW
     Route: 058
     Dates: start: 2008, end: 20190304
  9. ENBREL [Suspect]
     Active Substance: ETANERCEPT
     Dosage: 50 MILLIGRAM, QW
     Route: 058
     Dates: start: 2011, end: 20190304
  10. ENBREL [Suspect]
     Active Substance: ETANERCEPT
     Dosage: 50 MILLIGRAM
     Route: 058
     Dates: start: 20190304, end: 20190304
  11. ENBREL [Suspect]
     Active Substance: ETANERCEPT
     Dosage: 50 MILLIGRAM
     Route: 058
     Dates: start: 20190223, end: 20190223
  12. XELJANZ [Suspect]
     Active Substance: TOFACITINIB CITRATE
     Indication: Product used for unknown indication
     Dosage: 10 MILLIGRAM, QD, 5 MG, 2X/DAY
     Dates: start: 20190304, end: 20190304
  13. METHOTREXATE SODIUM [Suspect]
     Active Substance: METHOTREXATE SODIUM
     Indication: Rheumatoid arthritis
     Dosage: 5 MILLIGRAM, QD
     Route: 048
     Dates: start: 20190221, end: 20190304
  14. KARDEGIC [Concomitant]
     Active Substance: ASPIRIN DL-LYSINE
     Indication: Myocardial infarction
     Dosage: UNK
     Route: 048
     Dates: start: 2011
  15. TOFACITINIB [Concomitant]
     Active Substance: TOFACITINIB
     Dosage: 10 MILLIGRAM, QD (5 MG, 2X/DAY  )
     Dates: start: 20190304, end: 20190304
  16. ETANERCEPT [Concomitant]
     Active Substance: ETANERCEPT
     Indication: Rheumatoid arthritis
     Dosage: UNK
     Route: 058
     Dates: start: 2011, end: 20190304

REACTIONS (11)
  - Nephropathy toxic [Recovered/Resolved]
  - Thrombocytopenia [Recovered/Resolved]
  - Neutropenia [Recovered/Resolved]
  - Haematotoxicity [Recovered/Resolved]
  - Oesophagitis [Recovered/Resolved]
  - Back pain [Recovered/Resolved]
  - Renal impairment [Recovered/Resolved]
  - Medication error [Recovering/Resolving]
  - Discontinued product administered [Recovered/Resolved]
  - Wrong product administered [Recovering/Resolving]
  - Overdose [Recovered/Resolved]

NARRATIVE: CASE EVENT DATE: 20190304
